FAERS Safety Report 9176823 (Version 2)
Quarter: 2013Q2

REPORT INFORMATION
  Report Type: Spontaneous
  Country: US (occurrence: US)
  Receive Date: 20130321
  Receipt Date: 20130425
  Transmission Date: 20140414
  Serious: Yes (Other)
  Sender: FDA-Public Use
  Company Number: PHEH2013US006366

PATIENT
  Age: 20 Year
  Sex: Male

DRUGS (2)
  1. AFINITOR [Suspect]
     Dosage: 10 MG/DAY
  2. AFINITOR [Suspect]
     Dosage: 5 MG/DAY

REACTIONS (3)
  - Purpura [Unknown]
  - Rash [Unknown]
  - Acne [Unknown]
